FAERS Safety Report 5812820-7 (Version None)
Quarter: 2008Q3

REPORT INFORMATION
  Report Type: 
  Country: None (occurrence: None)
  Receive Date: 20080714
  Receipt Date: 20080707
  Transmission Date: 20090109
  Serious: Yes (Hospitalization)
  Sender: FDA-Public Use
  Company Number: 163-21880-08050002

PATIENT
  Age: 78 Year
  Sex: Male

DRUGS (3)
  1. REVLIMID [Suspect]
     Indication: MULTIPLE MYELOMA
     Dosage: X21 DAYS EVERY 28 DAYS16/, ORAL; X21 DAYS EVERY 28 DAYS, ORAL; EVERY 3 DAYS, ORAL
     Route: 048
     Dates: start: 20070611, end: 20070701
  2. REVLIMID [Suspect]
     Indication: MULTIPLE MYELOMA
     Dosage: X21 DAYS EVERY 28 DAYS16/, ORAL; X21 DAYS EVERY 28 DAYS, ORAL; EVERY 3 DAYS, ORAL
     Route: 048
     Dates: start: 20070716, end: 20070801
  3. REVLIMID [Suspect]
     Indication: MULTIPLE MYELOMA
     Dosage: X21 DAYS EVERY 28 DAYS16/, ORAL; X21 DAYS EVERY 28 DAYS, ORAL; EVERY 3 DAYS, ORAL
     Route: 048
     Dates: start: 20070918

REACTIONS (9)
  - BACK DISORDER [None]
  - FATIGUE [None]
  - FEBRILE NEUTROPENIA [None]
  - HAEMOGLOBIN DECREASED [None]
  - HYPOAESTHESIA [None]
  - HYPOTENSION [None]
  - LEUKOPENIA [None]
  - NAUSEA [None]
  - PNEUMONIA [None]
